FAERS Safety Report 14938594 (Version 1)
Quarter: 2018Q2

REPORT INFORMATION
  Report Type: Spontaneous
  Country: JP (occurrence: JP)
  Receive Date: 20180525
  Receipt Date: 20180525
  Transmission Date: 20180711
  Serious: Yes (Other)
  Sender: FDA-Public Use
  Company Number: JP-LUPIN PHARMACEUTICALS INC.-2018-03993

PATIENT
  Age: 37 Year
  Sex: Female

DRUGS (3)
  1. NORETHISTERONE AND ETHINYL ESTRADIOL [Suspect]
     Active Substance: ETHINYL ESTRADIOL\NORETHINDRONE
     Indication: ORAL CONTRACEPTION
     Dosage: UNK
     Route: 048
  2. DROSPIRENONE AND ETHINYL ESTRADIOL [Suspect]
     Active Substance: DROSPIRENONE\ETHINYL ESTRADIOL
     Indication: ORAL CONTRACEPTION
     Dosage: UNK
     Route: 048
  3. LEVONORGESTREL AND ETHINYL ESTRADIOL [Suspect]
     Active Substance: ETHINYL ESTRADIOL\LEVONORGESTREL
     Indication: ORAL CONTRACEPTION
     Dosage: UNK (TRIPHASIC ETHINYLESTRADIOL 30-40 MCG PLUS LEVONORGESTREL 50-125 MCG)
     Route: 048

REACTIONS (6)
  - Increased appetite [Unknown]
  - Abnormal weight gain [Unknown]
  - Drug intolerance [Unknown]
  - Libido increased [Unknown]
  - Vaginal haemorrhage [Unknown]
  - Vomiting [Unknown]
